FAERS Safety Report 14739182 (Version 1)
Quarter: 2018Q2

REPORT INFORMATION
  Report Type: Spontaneous
  Country: US (occurrence: US)
  Receive Date: 20180410
  Receipt Date: 20180410
  Transmission Date: 20180711
  Serious: No
  Sender: FDA-Public Use
  Company Number: US-GLENMARK PHARMACEUTICALS-2018GMK030970

PATIENT

DRUGS (1)
  1. EZETIMIBE. [Suspect]
     Active Substance: EZETIMIBE
     Indication: PRODUCT USED FOR UNKNOWN INDICATION
     Dosage: 10 MG, ONLY TOOK ONCE
     Route: 048
     Dates: start: 20180115, end: 20180116

REACTIONS (3)
  - Discomfort [Unknown]
  - Peripheral swelling [Unknown]
  - Agitation [Unknown]

NARRATIVE: CASE EVENT DATE: 201801
